FAERS Safety Report 5941335-0 (Version None)
Quarter: 2008Q4

REPORT INFORMATION
  Report Type: 
  Country: None (occurrence: None)
  Receive Date: 20081103
  Receipt Date: 20081103
  Transmission Date: 20090506
  Serious: Yes (Life-Threatening, Hospitalization)
  Sender: FDA-Public Use
  Company Number: None

PATIENT
  Age: 65 Year
  Sex: Female
  Weight: 116.1208 kg

DRUGS (2)
  1. AVANDIA [Suspect]
     Indication: DIABETES MELLITUS
     Dosage: 8 MG QD PO
     Route: 048
     Dates: start: 20020101, end: 20040401
  2. ALLOPURINOL [Suspect]
     Indication: GOUT
     Dosage: 100 MG QD PO
     Route: 048
     Dates: start: 20010101, end: 20040401

REACTIONS (5)
  - ASTHENIA [None]
  - HEPATITIS [None]
  - RENAL FAILURE ACUTE [None]
  - URINE OUTPUT DECREASED [None]
  - VOMITING [None]
